FAERS Safety Report 6844537-4 (Version None)
Quarter: 2010Q2

REPORT INFORMATION
  Report Type: 
  Country: None (occurrence: None)
  Receive Date: 20100629
  Receipt Date: 20100510
  Transmission Date: 20101027
  Serious: No
  Sender: FDA-Public Use
  Company Number: US-WYE-H15060310

PATIENT
  Sex: Male
  Weight: 81.72 kg

DRUGS (1)
  1. PRISTIQ [Suspect]
     Dosage: MISTAKENLY TOOK TWO 100 MG TABLETS DAILY; INSTEAD OF 100 MG/DAILY, ORAL
     Route: 048
     Dates: start: 20100114

REACTIONS (6)
  - DIZZINESS [None]
  - DRUG WITHDRAWAL SYNDROME [None]
  - FEELING DRUNK [None]
  - HEAD DISCOMFORT [None]
  - INCORRECT DOSE ADMINISTERED [None]
  - INFLUENZA LIKE ILLNESS [None]
